FAERS Safety Report 10597167 (Version 4)
Quarter: 2015Q2

REPORT INFORMATION
  Report Type: Spontaneous
  Country: JP (occurrence: JP)
  Receive Date: 20141121
  Receipt Date: 20150525
  Transmission Date: 20150821
  Serious: Yes (Hospitalization)
  Sender: FDA-Public Use
  Company Number: JP-009507513-1411JPN007849

PATIENT
  Age: 39 Year
  Sex: Male
  Weight: 69 kg

DRUGS (2)
  1. REBETOL [Suspect]
     Active Substance: RIBAVIRIN
     Indication: CHRONIC HEPATITIS C
     Dosage: 1000 MG, QD,5CAPSULES IN 2 DIVIDED DOSES/DAY(1 CAPSULE 200MG),DURATION 6MONTHS
     Route: 048
     Dates: start: 20130808, end: 20140123
  2. PEGINTRON [Suspect]
     Active Substance: PEGINTERFERON ALFA-2B
     Indication: CHRONIC HEPATITIS C
     Dosage: 120 MICROGRAM, QW,DURATION 6 MONTHS
     Route: 058
     Dates: start: 20130808, end: 20140116

REACTIONS (2)
  - Type 2 diabetes mellitus [Recovering/Resolving]
  - Diabetic ketoacidosis [Recovered/Resolved]

NARRATIVE: CASE EVENT DATE: 201401
